FAERS Safety Report 5457481-4 (Version None)
Quarter: 2007Q3

REPORT INFORMATION
  Report Type: 
  Country: None (occurrence: None)
  Receive Date: 20070918
  Receipt Date: 20070228
  Transmission Date: 20080115
  Serious: Yes (Hospitalization)
  Sender: FDA-Public Use
  Company Number: US-ASTRAZENECA-2007UW04112

PATIENT
  Age: 14994 Day
  Sex: Male
  Weight: 175.5 kg

DRUGS (9)
  1. SEROQUEL [Suspect]
     Indication: BIPOLAR DISORDER
     Dosage: 300 MG -600 MG
     Route: 048
     Dates: start: 20040315, end: 20040506
  2. SEROQUEL [Suspect]
     Route: 048
     Dates: start: 20040506
  3. RISPERDAL [Suspect]
     Indication: BIPOLAR DISORDER
     Dosage: 4 TO 6 MG
     Dates: start: 20020108, end: 20031012
  4. ZYPREXA [Suspect]
     Indication: BIPOLAR DISORDER
     Dosage: 10-20 MG
     Dates: start: 20011018, end: 20011218
  5. ZYPREXA [Suspect]
     Dates: start: 20031108, end: 20040402
  6. GEODON [Concomitant]
     Dosage: 40-60 MG
     Dates: start: 20040501
  7. HALDOL [Concomitant]
     Dates: start: 20040901
  8. HALDOL [Concomitant]
     Dates: start: 20050125
  9. DEPAKOTE [Concomitant]
     Dosage: 1000-2000 MG
     Dates: start: 20041201, end: 20050316

REACTIONS (3)
  - DEPRESSION [None]
  - SUICIDAL IDEATION [None]
  - TYPE 2 DIABETES MELLITUS [None]
